FAERS Safety Report 9342115 (Version 2)
Quarter: 2013Q2

REPORT INFORMATION
  Report Type: Spontaneous
  Country: US (occurrence: US)
  Receive Date: 20130611
  Receipt Date: 20130626
  Transmission Date: 20140414
  Serious: Yes (Hospitalization)
  Sender: FDA-Public Use
  Company Number: US-PFIZER INC-2013173187

PATIENT
  Age: 68 Year
  Sex: Male
  Weight: 71.2 kg

DRUGS (15)
  1. CELEBREX [Suspect]
     Indication: ARTHRITIS
     Dosage: 200 MG, 1X/DAY
     Route: 048
  2. ADVAIR [Concomitant]
     Indication: CHRONIC OBSTRUCTIVE PULMONARY DISEASE
     Dosage: 250/50 UNK, UNK
  3. ALBUTEROL [Concomitant]
     Indication: CHRONIC OBSTRUCTIVE PULMONARY DISEASE
     Dosage: 90 UG, UNK
  4. SPIRIVA [Concomitant]
     Indication: CHRONIC OBSTRUCTIVE PULMONARY DISEASE
     Dosage: 18 UG, UNK
  5. TAMSULOSIN HYDROCHLORIDE [Concomitant]
     Dosage: 0.4 MG, 2X/DAY
  6. VENTOLIN HFA [Concomitant]
     Indication: CHRONIC OBSTRUCTIVE PULMONARY DISEASE
     Dosage: 108 UG, UNK
  7. ASPIRIN [Concomitant]
     Dosage: 81 MG, UNK
  8. CELEXA [Concomitant]
     Dosage: 20 MG, UNK
  9. VITAMIN B12 [Concomitant]
     Dosage: UNK
  10. IMDUR [Concomitant]
     Indication: CARDIAC DISORDER
     Dosage: 30 MG, UNK
  11. LOSARTAN [Concomitant]
     Dosage: 100 MG, 1X/DAY
     Route: 048
  12. MAG 64 [Concomitant]
     Dosage: UNK
  13. NITROGLYCERIN [Concomitant]
     Dosage: UNK
  14. ISOSORBIDE [Concomitant]
     Dosage: 30 MG, UNK
  15. WARFARIN [Concomitant]
     Dosage: 5 MG, UNK

REACTIONS (1)
  - Sinus arrhythmia [Unknown]
